FAERS Safety Report 8728450 (Version 2)
Quarter: 2012Q4

REPORT INFORMATION
  Report Type: 
  Country: US (occurrence: US)
  Receive Date: 20120817
  Receipt Date: 20120917
  Transmission Date: 20130627
  Serious: Yes (Hospitalization, Other)
  Sender: FDA-Public Use
  Company Number: US-UCBSA-063454

PATIENT
  Age: 50 Year
  Sex: Female
  Weight: 52.2 kg

DRUGS (1)
  1. CIMZIA [Suspect]
     Indication: CROHN^S DISEASE
     Dates: start: 20120522, end: 20120810

REACTIONS (1)
  - Small intestinal obstruction [Recovered/Resolved]
